FAERS Safety Report 18273233 (Version 1)
Quarter: 2020Q3

REPORT INFORMATION
  Report Type: Spontaneous
  Country: BE (occurrence: BE)
  Receive Date: 20200916
  Receipt Date: 20200916
  Transmission Date: 20201103
  Serious: Yes (Other)
  Sender: FDA-Public Use
  Company Number: BE-ROCHE-2670378

PATIENT
  Sex: Female

DRUGS (9)
  1. AVAMYS [Concomitant]
     Active Substance: FLUTICASONE FUROATE
  2. CLADRIBINE. [Concomitant]
     Active Substance: CLADRIBINE
     Indication: HAIRY CELL LEUKAEMIA
  3. PENTAMIDINE [Concomitant]
     Active Substance: PENTAMIDINE
  4. PARACETAMOL [Concomitant]
     Active Substance: ACETAMINOPHEN
     Dosage: OCCASIONALLY
  5. IBUPROFEN. [Concomitant]
     Active Substance: IBUPROFEN
  6. MABTHERA [Suspect]
     Active Substance: RITUXIMAB
     Indication: HAIRY CELL LEUKAEMIA
  7. MOBIFLEX NEO [Concomitant]
  8. MABTHERA [Suspect]
     Active Substance: RITUXIMAB
     Indication: PRODUCT USED FOR UNKNOWN INDICATION
     Route: 065
  9. ACYCLOVIR. [Concomitant]
     Active Substance: ACYCLOVIR

REACTIONS (15)
  - Migraine with aura [Unknown]
  - Palpitations [Unknown]
  - Disturbance in attention [Unknown]
  - Pyrexia [Unknown]
  - Respiratory tract irritation [Unknown]
  - Rash [Recovered/Resolved]
  - Headache [Unknown]
  - Herpes zoster [Recovered/Resolved]
  - Cough [Unknown]
  - Tinnitus [Unknown]
  - Vision blurred [Not Recovered/Not Resolved]
  - Dysphagia [Unknown]
  - Dyspnoea [Unknown]
  - Osteoarthritis [Unknown]
  - Depressed mood [Unknown]

NARRATIVE: CASE EVENT DATE: 2018
